FAERS Safety Report 7319312-7 (Version None)
Quarter: 2011Q1

REPORT INFORMATION
  Report Type: 
  Country: None (occurrence: None)
  Receive Date: 20110228
  Receipt Date: 20100125
  Transmission Date: 20110831
  Serious: No
  Sender: FDA-Public Use
  Company Number: A0841525A

PATIENT
  Age: 40 Year
  Sex: Female

DRUGS (2)
  1. LAMICTAL [Suspect]
     Indication: DEPRESSION
     Dosage: 150U PER DAY
     Route: 064
  2. AMOXICILLIN [Concomitant]

REACTIONS (3)
  - DRUG EXPOSURE DURING PREGNANCY [None]
  - LIVE BIRTH [None]
  - DRUG LEVEL INCREASED [None]
